FAERS Safety Report 7222774-7 (Version None)
Quarter: 2011Q1

REPORT INFORMATION
  Report Type: 
  Country: None (occurrence: None)
  Receive Date: 20110112
  Receipt Date: 20110107
  Transmission Date: 20110831
  Serious: Yes (Disabling, Other)
  Sender: FDA-Public Use
  Company Number: BE-ROCHE-744729

PATIENT
  Sex: Male
  Weight: 72 kg

DRUGS (11)
  1. HUMIRA [Suspect]
     Indication: RHEUMATOID ARTHRITIS
     Route: 058
     Dates: start: 20060523, end: 20070724
  2. KREDEX [Concomitant]
     Route: 048
     Dates: start: 20070701
  3. CELEBREX [Concomitant]
     Indication: RHEUMATOID ARTHRITIS
     Route: 048
     Dates: start: 20041212
  4. METFORMAX [Concomitant]
     Route: 048
     Dates: start: 20010401
  5. ARAVA [Concomitant]
     Indication: RHEUMATOID ARTHRITIS
     Route: 048
     Dates: start: 20040101, end: 20100701
  6. ROACTEMRA [Suspect]
     Indication: RHEUMATOID ARTHRITIS
     Route: 042
     Dates: start: 20091223, end: 20100414
  7. ZOCOR [Concomitant]
     Route: 048
     Dates: start: 20070701
  8. APROVEL [Concomitant]
     Route: 048
     Dates: start: 20070701
  9. PERINDOPRIL ERBUMINE [Concomitant]
     Route: 048
     Dates: start: 20070701
  10. LEDERTREXATE [Concomitant]
     Indication: RHEUMATOID ARTHRITIS
     Route: 048
     Dates: start: 20000101
  11. MEDROL [Concomitant]
     Indication: RHEUMATOID ARTHRITIS
     Route: 048
     Dates: start: 20000101

REACTIONS (3)
  - GENERAL PHYSICAL HEALTH DETERIORATION [None]
  - CARDIAC FAILURE [None]
  - SKIN LESION [None]
